FAERS Safety Report 17148773 (Version 1)
Quarter: 2019Q4

REPORT INFORMATION
  Report Type: Report from Study
  Country: US (occurrence: US)
  Receive Date: 20191213
  Receipt Date: 20191213
  Transmission Date: 20200122
  Serious: Yes (Other)
  Sender: FDA-Public Use
  Company Number: US-ROCHE-2497990

PATIENT
  Age: 51 Year
  Sex: Male

DRUGS (4)
  1. OFLOXACIN. [Concomitant]
     Active Substance: OFLOXACIN
     Route: 061
  2. BEVACIZUMAB. [Suspect]
     Active Substance: BEVACIZUMAB
     Indication: CORNEAL NEOVASCULARISATION
     Dosage: 0.05-0.15 ML OF 2.5 MG/0.1 ML
     Route: 050
  3. PREDNISOLONE. [Concomitant]
     Active Substance: PREDNISOLONE
     Route: 065
  4. VALACYCLOVIR [Concomitant]
     Active Substance: VALACYCLOVIR HYDROCHLORIDE

REACTIONS (1)
  - Corneal epithelium defect [Recovered/Resolved]
